FAERS Safety Report 4416182-1 (Version None)
Quarter: 2004Q2

REPORT INFORMATION
  Report Type: 
  Country: None (occurrence: None)
  Receive Date: 20040623
  Receipt Date: 20040414
  Transmission Date: 20050107
  Serious: Yes (Life-Threatening)
  Sender: FDA-Public Use
  Company Number: WAES 0404USA01462

PATIENT

DRUGS (1)
  1. INVANZ [Suspect]

REACTIONS (1)
  - THROMBOCYTHAEMIA [None]
